FAERS Safety Report 19652316 (Version 1)
Quarter: 2021Q3

REPORT INFORMATION
  Report Type: Spontaneous
  Country: AR (occurrence: AR)
  Receive Date: 20210803
  Receipt Date: 20210803
  Transmission Date: 20211014
  Serious: Yes (Other)
  Sender: FDA-Public Use
  Company Number: AR-PFIZER INC-202100929379

PATIENT
  Age: 79 Year
  Sex: Female

DRUGS (1)
  1. IBRANCE [Suspect]
     Active Substance: PALBOCICLIB
     Indication: BREAST CANCER METASTATIC
     Dosage: 125 MG, CYCLIC (DAILY 3X1 SCHEME)
     Dates: start: 20200323

REACTIONS (9)
  - Second primary malignancy [Unknown]
  - Pain in extremity [Unknown]
  - Neoplasm progression [Unknown]
  - Skin cancer [Unknown]
  - Impaired healing [Unknown]
  - Emphysema [Unknown]
  - Peripheral swelling [Unknown]
  - Feeling abnormal [Unknown]
  - Peripheral vascular disorder [Unknown]

NARRATIVE: CASE EVENT DATE: 202105
